FAERS Safety Report 6005663-5 (Version None)
Quarter: 2008Q4

REPORT INFORMATION
  Report Type: 
  Country: None (occurrence: None)
  Receive Date: 20081215
  Receipt Date: 20081201
  Transmission Date: 20090506
  Serious: Yes (Hospitalization, Disabling)
  Sender: FDA-Public Use
  Company Number: 100#08#2008-06095

PATIENT
  Age: 65 Year
  Sex: Female

DRUGS (2)
  1. SIMVASTATIN [Suspect]
     Indication: DRUG USE FOR UNKNOWN INDICATION
     Dosage: 40 MG
  2. FLUCONAZOLE [Suspect]
     Indication: CANDIDIASIS
     Dosage: 800 MG

REACTIONS (4)
  - CANDIDIASIS [None]
  - DEVICE RELATED INFECTION [None]
  - DRUG INTERACTION [None]
  - RHABDOMYOLYSIS [None]
